FAERS Safety Report 6694465-2 (Version None)
Quarter: 2010Q2

REPORT INFORMATION
  Report Type: 
  Country: None (occurrence: None)
  Receive Date: 20100423
  Receipt Date: 20100413
  Transmission Date: 20101027
  Serious: Yes (Hospitalization, Other)
  Sender: FDA-Public Use
  Company Number: AU-PFIZER INC-2008073072

PATIENT
  Age: 30 Year
  Sex: Female
  Weight: 59 kg

DRUGS (11)
  1. *PLACEBO [Suspect]
     Indication: COLORECTAL CANCER
     Dosage: 0 MG, 1X/DAY
     Route: 048
     Dates: start: 20080213, end: 20080828
  2. IRINOTECAN HCL [Suspect]
     Indication: COLORECTAL CANCER
     Dosage: 270 MG, EVERY 2 WEEKS
     Route: 042
     Dates: start: 20080213, end: 20080827
  3. FLUOROURACIL [Suspect]
     Indication: COLORECTAL CANCER
     Dosage: 600 MG, EVERY 2 WEEKS
     Route: 042
     Dates: start: 20080213, end: 20080827
  4. FLUOROURACIL [Suspect]
     Dosage: 3575 MG, EVERY 2 WEEKS
     Route: 042
     Dates: start: 20080213, end: 20080827
  5. CALCIUM FOLINATE [Suspect]
     Indication: COLORECTAL CANCER
     Dosage: 300 MG, EVERY 2 WEEKS
     Route: 042
     Dates: start: 20080213, end: 20080827
  6. OXYCODONE HCL [Concomitant]
     Dosage: 10 MG, UNK
     Dates: start: 20080730
  7. MERSYNDOL [Concomitant]
     Dates: start: 20080714
  8. PRAMIN [Concomitant]
     Dates: start: 20080213
  9. DEXAMETHASONE [Concomitant]
     Dates: start: 20080214
  10. GRANISETRON [Concomitant]
     Dates: start: 20080214
  11. CENTRUM [Concomitant]
     Dates: start: 20080616

REACTIONS (2)
  - HYDRONEPHROSIS [None]
  - INTESTINAL OBSTRUCTION [None]
